FAERS Safety Report 25248527 (Version 2)
Quarter: 2025Q2

REPORT INFORMATION
  Report Type: Spontaneous
  Country: US (occurrence: US)
  Receive Date: 20250429
  Receipt Date: 20250527
  Transmission Date: 20250716
  Serious: Yes (Hospitalization)
  Sender: CATALYST PHARMA
  Company Number: US-CATALYST PHARMACEUTICALS, INC-US-CATA-25-00587

PATIENT
  Sex: Male
  Weight: 78.005 kg

DRUGS (8)
  1. FIRDAPSE [Suspect]
     Active Substance: AMIFAMPRIDINE PHOSPHATE
     Indication: Myasthenic syndrome
     Dosage: ONE HALF TABLET BY MOUTH THREE TIMES A DAY, TITRATING UP TO 1.5 TABLETS THREE TIMES A DAY
     Route: 048
     Dates: start: 20190307, end: 2019
  2. FIRDAPSE [Suspect]
     Active Substance: AMIFAMPRIDINE PHOSPHATE
     Dosage: 1.5 TABLETS THREE TIMES A DAY (45 MG DIVIDED DOSES)
     Route: 048
     Dates: start: 20191017
  3. ASPIRIN [Concomitant]
     Active Substance: ASPIRIN
     Indication: Thrombosis prophylaxis
     Dosage: 81MG TABLET ONE DAILY
     Route: 065
  4. COD LIVER OIL [Concomitant]
     Active Substance: COD LIVER OIL
     Indication: Cardiovascular disorder
     Dosage: 500MG ONE TWICE A DAY
     Route: 065
  5. KEPPRA [Concomitant]
     Active Substance: LEVETIRACETAM
     Indication: Seizure prophylaxis
     Dosage: 250MG TABLET ONE TWICE A DAY
     Route: 065
  6. SYNTHROID [Concomitant]
     Active Substance: LEVOTHYROXINE SODIUM
     Indication: Hypothyroidism
     Dosage: 175 MCG ONE DAILY
     Route: 065
  7. VALSARTAN [Concomitant]
     Active Substance: VALSARTAN
     Indication: Hypertension
     Dosage: 80MG ONE DAILY
     Route: 065
  8. ZINC [Concomitant]
     Active Substance: ZINC
     Indication: Immune enhancement therapy
     Dosage: 20MG ONE DAILY
     Route: 065

REACTIONS (2)
  - Haemorrhagic stroke [Recovered/Resolved]
  - Malaise [Unknown]

NARRATIVE: CASE EVENT DATE: 20250101
